FAERS Safety Report 15866525 (Version 1)
Quarter: 2019Q1

REPORT INFORMATION
  Report Type: Spontaneous
  Country: JP (occurrence: JP)
  Receive Date: 20190125
  Receipt Date: 20190125
  Transmission Date: 20190417
  Serious: Yes (Hospitalization)
  Sender: FDA-Public Use
  Company Number: JP-TEVA-2019-JP-1004846

PATIENT
  Age: 85 Year
  Sex: Female

DRUGS (1)
  1. AZILECT [Suspect]
     Active Substance: RASAGILINE MESYLATE
     Indication: PARKINSON^S DISEASE
     Route: 048
     Dates: start: 201810, end: 201901

REACTIONS (2)
  - Contusion [Unknown]
  - Fall [Recovered/Resolved]

NARRATIVE: CASE EVENT DATE: 201901
